FAERS Safety Report 9616796 (Version 1)
Quarter: 2013Q4

REPORT INFORMATION
  Report Type: Spontaneous
  Country: US (occurrence: US)
  Receive Date: 20131011
  Receipt Date: 20131011
  Transmission Date: 20140711
  Serious: Yes (Other)
  Sender: FDA-Public Use
  Company Number: US-WATSON-2013-17867

PATIENT
  Age: 86 Year
  Sex: Female
  Weight: 42 kg

DRUGS (2)
  1. ESTRADIOL (WATSON LABORATORIES) [Suspect]
     Indication: BREAST CANCER RECURRENT
     Dosage: 2 MG, DAILY
     Route: 048
     Dates: start: 20130715, end: 20130921
  2. ESTRADIOL (WATSON LABORATORIES) [Suspect]
     Indication: SKIN MASS

REACTIONS (4)
  - Vaginal haemorrhage [Recovered/Resolved]
  - Abdominal pain lower [Recovered/Resolved]
  - Endometrial hypertrophy [Not Recovered/Not Resolved]
  - Thrombophlebitis superficial [Recovered/Resolved]
